FAERS Safety Report 21545451 (Version 3)
Quarter: 2022Q4

REPORT INFORMATION
  Report Type: Spontaneous
  Country: RU (occurrence: None)
  Receive Date: 20221103
  Receipt Date: 20221208
  Transmission Date: 20230112
  Serious: Yes (Death, Hospitalization, Other)
  Sender: FDA-Public Use
  Company Number: RU-ROCHE-3208649

PATIENT
  Age: 2 Year
  Weight: 12.3 kg

DRUGS (2)
  1. EVRYSDI [Suspect]
     Active Substance: RISDIPLAM
     Indication: Spinal muscular atrophy
     Route: 048
     Dates: start: 20200730, end: 202207
  2. ZOLGENSMA [Concomitant]
     Active Substance: ONASEMNOGENE ABEPARVOVEC-XIOI
     Indication: Spinal muscular atrophy
     Route: 065

REACTIONS (5)
  - Cardiac arrest [Fatal]
  - Pneumonia [Unknown]
  - Tracheobronchitis [Unknown]
  - Respiratory failure [Unknown]
  - Atelectasis [Unknown]
